FAERS Safety Report 13291821 (Version 1)
Quarter: 2017Q1

REPORT INFORMATION
  Report Type: Spontaneous
  Country: JP (occurrence: JP)
  Receive Date: 20170303
  Receipt Date: 20170303
  Transmission Date: 20170428
  Serious: Yes (Other)
  Sender: FDA-Public Use
  Company Number: JP-STRIDES ARCOLAB LIMITED-2017SP003266

PATIENT

DRUGS (13)
  1. IBUPROFEN. [Suspect]
     Active Substance: IBUPROFEN
     Indication: STILL^S DISEASE ADULT ONSET
     Dosage: UNK, UNKNOWN
     Route: 065
  2. TIPEPIDINE [Suspect]
     Active Substance: TIPEPIDINE
     Indication: STILL^S DISEASE ADULT ONSET
     Dosage: UNK, UNKNOWN
     Route: 065
  3. PREDNISOLONE. [Suspect]
     Active Substance: PREDNISOLONE
     Dosage: 5 MG, PER DAY
     Route: 065
  4. CEFCAPENE PIVOXIL [Suspect]
     Active Substance: CEFCAPENE PIVOXIL
     Indication: STILL^S DISEASE ADULT ONSET
     Dosage: UNK, UNKNOWN
     Route: 065
  5. PREDNISOLONE. [Suspect]
     Active Substance: PREDNISOLONE
     Dosage: 50 MG, PER DAY
     Route: 065
  6. PREDNISOLONE. [Suspect]
     Active Substance: PREDNISOLONE
     Indication: STILL^S DISEASE ADULT ONSET
     Dosage: 25 MG, DAILY
     Route: 065
  7. PROMETHAZINE METHYLENE DISALICYLATE [Suspect]
     Active Substance: PROMETHAZINE METHYLENEDISALICYLATE
     Indication: JUVENILE IDIOPATHIC ARTHRITIS
     Dosage: UNK, UNKNOWN
     Route: 065
  8. PREDNISOLONE. [Suspect]
     Active Substance: PREDNISOLONE
     Dosage: 20 MG, UNKNOWN
     Route: 065
  9. DEXTROMETHORPHAN HYDROBROMIDE. [Suspect]
     Active Substance: DEXTROMETHORPHAN HYDROBROMIDE
     Indication: STILL^S DISEASE ADULT ONSET
     Dosage: UNK, UNKNOWN
     Route: 065
  10. CAFFEINE. [Suspect]
     Active Substance: CAFFEINE
     Indication: STILL^S DISEASE ADULT ONSET
     Dosage: UNK, UNKNOWN
     Route: 065
  11. HEPARIN [Suspect]
     Active Substance: HEPARIN SODIUM
     Indication: ANTICOAGULANT THERAPY
     Dosage: UNK, UNKNOWN
     Route: 065
  12. SALICYLAMIDE [Suspect]
     Active Substance: SALICYLAMIDE
     Indication: STILL^S DISEASE ADULT ONSET
     Dosage: UNK, UNKNOWN
     Route: 065
  13. PREDNISOLONE. [Suspect]
     Active Substance: PREDNISOLONE
     Dosage: 15 MG, PER DAY
     Route: 065

REACTIONS (4)
  - Off label use [Unknown]
  - Exposure during pregnancy [Unknown]
  - Premature delivery [Unknown]
  - Drug ineffective for unapproved indication [Unknown]
